FAERS Safety Report 6806764-1 (Version None)
Quarter: 2010Q2

REPORT INFORMATION
  Report Type: 
  Country: None (occurrence: None)
  Receive Date: 20100629
  Receipt Date: 20080625
  Transmission Date: 20101027
  Serious: Yes (Other)
  Sender: FDA-Public Use
  Company Number: US-PFIZER INC-2008041391

PATIENT
  Sex: Female
  Weight: 84.09 kg

DRUGS (5)
  1. ARTHROTEC [Suspect]
     Indication: NEURALGIA
     Dosage: BID
     Route: 048
     Dates: start: 20080505, end: 20080508
  2. CYCLOBENZAPRINE [Concomitant]
  3. CYCLOSPORINE [Concomitant]
     Dosage: BID
     Route: 065
  4. ENALAPRIL MALEATE [Concomitant]
     Dosage: BID
     Route: 065
  5. CONTRACEPTIVE, UNSPECIFIED [Concomitant]
     Route: 065

REACTIONS (3)
  - ABDOMINAL PAIN UPPER [None]
  - HAEMORRHAGE [None]
  - NAUSEA [None]
